FAERS Safety Report 23235598 (Version 1)
Quarter: 2023Q4

REPORT INFORMATION
  Report Type: Report from Study
  Country: CA (occurrence: CA)
  Receive Date: 20231128
  Receipt Date: 20231128
  Transmission Date: 20240109
  Serious: Yes (Other)
  Sender: FDA-Public Use
  Company Number: CA-JNJFOC-20231160741

PATIENT
  Sex: Female

DRUGS (1)
  1. SIMPONI [Suspect]
     Active Substance: GOLIMUMAB
     Indication: Crohn^s disease
     Route: 058
     Dates: start: 20151119, end: 20231114

REACTIONS (3)
  - Crohn^s disease [Not Recovered/Not Resolved]
  - Skin reaction [Not Recovered/Not Resolved]
  - Fungal infection [Not Recovered/Not Resolved]
